FAERS Safety Report 10171908 (Version 1)
Quarter: 2014Q2

REPORT INFORMATION
  Report Type: Spontaneous
  Country: FI (occurrence: FI)
  Receive Date: 20140515
  Receipt Date: 20140515
  Transmission Date: 20141212
  Serious: Yes (Hospitalization)
  Sender: FDA-Public Use
  Company Number: FI-PFIZER INC-2014128573

PATIENT
  Age: 61 Year
  Sex: Female

DRUGS (6)
  1. LYRICA [Suspect]
     Dosage: 50 MG, 3X/DAY
  2. DEPRAKINE [Suspect]
     Dosage: 600 MG, UNK
  3. PERPHENAZINE [Suspect]
     Dosage: 2 MG, 2X/DAY
  4. AMITRIPTYLINE HYDROCHLORIDE\CHLORDIAZEPOXIDE [Suspect]
     Dosage: 1-2 X1
  5. VALPROIC ACID [Suspect]
     Dosage: 300 MG, 2X/DAY
  6. SEPRAM [Suspect]
     Dosage: 20 MG, 1X/DAY

REACTIONS (17)
  - Suicidal ideation [Recovered/Resolved]
  - Hypokinesia [Recovering/Resolving]
  - Tremor [Recovering/Resolving]
  - Weight increased [Recovering/Resolving]
  - Psychotic disorder [Recovering/Resolving]
  - Memory impairment [Not Recovered/Not Resolved]
  - Visual impairment [Unknown]
  - Insomnia [Unknown]
  - Mania [Unknown]
  - Cognitive disorder [Unknown]
  - Depressed mood [Unknown]
  - Self-injurious ideation [Unknown]
  - Apathy [Unknown]
  - Hallucination, visual [Unknown]
  - Activities of daily living impaired [None]
  - Impaired work ability [None]
  - Immobile [None]
